FAERS Safety Report 7181370-0 (Version None)
Quarter: 2010Q4

REPORT INFORMATION
  Report Type: 
  Country: None (occurrence: None)
  Receive Date: 20101221
  Receipt Date: 20100422
  Transmission Date: 20110411
  Serious: Yes (Other)
  Sender: FDA-Public Use
  Company Number: US-AMGEN-QUU407828

PATIENT

DRUGS (4)
  1. ENBREL [Suspect]
     Indication: PSORIASIS
     Dosage: UNK UNK, UNK
     Dates: end: 20080101
  2. VALSARTAN [Concomitant]
  3. MIRTAZAPINE [Concomitant]
  4. CLONAZEPAM [Concomitant]

REACTIONS (1)
  - THROMBOCYTOPENIA [None]
